FAERS Safety Report 8224259-8 (Version None)
Quarter: 2012Q1

REPORT INFORMATION
  Report Type: 
  Country: None (occurrence: None)
  Receive Date: 20120321
  Receipt Date: 20120319
  Transmission Date: 20120608
  Serious: Yes (Other)
  Sender: FDA-Public Use
  Company Number: SE-PFIZER INC-2012009073

PATIENT
  Age: 61 Year
  Sex: Female

DRUGS (4)
  1. OXAZEPAM [Concomitant]
     Dosage: 10 MG, AS NEEDED
     Dates: start: 20101001
  2. SERTRALINE HYDROCHLORIDE [Suspect]
     Indication: DEPRESSION
     Dosage: 50 MG, 1X/DAY
     Route: 048
     Dates: start: 20101001, end: 20101014
  3. SERTRALINE HYDROCHLORIDE [Suspect]
     Dosage: 100 MG, 1X/DAY
     Route: 048
     Dates: start: 20101015, end: 20110512
  4. LERGIGAN [Concomitant]
     Dosage: UNK
     Dates: start: 20101010, end: 20101030

REACTIONS (1)
  - COLITIS MICROSCOPIC [None]
